FAERS Safety Report 4692255-3 (Version None)
Quarter: 2005Q2

REPORT INFORMATION
  Report Type: 
  Country: None (occurrence: None)
  Receive Date: 20050614
  Receipt Date: 20050601
  Transmission Date: 20051028
  Serious: Yes (Other)
  Sender: FDA-Public Use
  Company Number: 2005084494

PATIENT
  Age: 78 Year
  Sex: Female

DRUGS (4)
  1. XANAX [Suspect]
     Indication: ILL-DEFINED DISORDER
     Dosage: 1.5 MG (0.5 MG, 2 IN 1 D), UNKNOWN
  2. RISPERDAL [Concomitant]
  3. DAFLON (DIOSMIN) [Concomitant]
  4. ANALGESICS (ANALGESICS) [Concomitant]

REACTIONS (1)
  - HEPATITIS [None]
